FAERS Safety Report 7923157-4 (Version None)
Quarter: 2011Q4

REPORT INFORMATION
  Report Type: 
  Country: None (occurrence: None)
  Receive Date: 20111117
  Receipt Date: 20110131
  Transmission Date: 20120403
  Serious: No
  Sender: FDA-Public Use
  Company Number: US-AMGEN-USASP2011003768

PATIENT
  Age: 46 Year
  Sex: Male
  Weight: 81.633 kg

DRUGS (2)
  1. ENBREL [Suspect]
     Dosage: 50 MG, QWK
     Dates: start: 20110112
  2. ENBREL [Suspect]
     Indication: PSORIATIC ARTHROPATHY
     Dosage: 50 MG, QWK
     Dates: start: 20100816

REACTIONS (5)
  - CHEST DISCOMFORT [None]
  - RESPIRATORY TRACT CONGESTION [None]
  - UPPER RESPIRATORY TRACT INFECTION [None]
  - UPPER RESPIRATORY TRACT CONGESTION [None]
  - SINUS CONGESTION [None]
